FAERS Safety Report 5001286-5 (Version None)
Quarter: 2006Q2

REPORT INFORMATION
  Report Type: 
  Country: None (occurrence: None)
  Receive Date: 20060512
  Receipt Date: 20060503
  Transmission Date: 20061013
  Serious: Yes (Life-Threatening, Hospitalization, Disabling, Other)
  Sender: FDA-Public Use
  Company Number: MA-MERCK-0605USA00612

PATIENT
  Age: 80 Year
  Sex: Female

DRUGS (3)
  1. FOSAMAX [Suspect]
     Indication: OSTEOPOROSIS
     Route: 048
     Dates: start: 20060317, end: 20060317
  2. [THERAPY UNSPECIFIED] [Concomitant]
     Indication: HYPERTENSION
     Route: 048
  3. ARCOXIA [Concomitant]
     Indication: OSTEOARTHRITIS
     Route: 048
     Dates: start: 20060307, end: 20060307

REACTIONS (2)
  - DUODENAL ULCER HAEMORRHAGE [None]
  - GASTRIC ULCER HAEMORRHAGE [None]
